FAERS Safety Report 4665764-0 (Version None)
Quarter: 2005Q2

REPORT INFORMATION
  Report Type: 
  Country: None (occurrence: None)
  Receive Date: 20050517
  Receipt Date: 20050225
  Transmission Date: 20051028
  Serious: No
  Sender: FDA-Public Use
  Company Number: S05-USA-01037-01

PATIENT
  Age: 62 Year
  Sex: Female

DRUGS (4)
  1. NAMENDA [Suspect]
     Indication: DEMENTIA
     Dosage: 5 MG QD PO
     Route: 048
     Dates: start: 20050223
  2. NAMENDA [Suspect]
     Indication: PROPHYLAXIS
     Dosage: 5 MG QD PO
     Route: 048
     Dates: start: 20050223
  3. AVANDIA [Concomitant]
  4. FOSAMAX [Concomitant]

REACTIONS (4)
  - BREAST DISCOMFORT [None]
  - BREAST PAIN [None]
  - PRURITUS GENERALISED [None]
  - URTICARIA [None]
